FAERS Safety Report 6908860-7 (Version None)
Quarter: 2010Q3

REPORT INFORMATION
  Report Type: 
  Country: None (occurrence: None)
  Receive Date: 20100805
  Receipt Date: 20100804
  Transmission Date: 20110219
  Serious: Yes (Hospitalization)
  Sender: FDA-Public Use
  Company Number: Z0003987B

PATIENT
  Sex: Male
  Weight: 56.7 kg

DRUGS (2)
  1. LAPATINIB [Suspect]
     Indication: GASTRIC CANCER
     Dosage: 1500MG PER DAY
     Route: 048
     Dates: start: 20100316
  2. PACLITAXEL [Suspect]
     Indication: GASTRIC CANCER
     Dosage: 80MGM2 CYCLIC
     Route: 042
     Dates: start: 20100316

REACTIONS (1)
  - PNEUMONIA [None]
